FAERS Safety Report 4486409-9 (Version None)
Quarter: 2004Q4

REPORT INFORMATION
  Report Type: 
  Country: None (occurrence: None)
  Receive Date: 20041027
  Receipt Date: 20041019
  Transmission Date: 20050328
  Serious: Yes (Other)
  Sender: FDA-Public Use
  Company Number: US-ABBOTT-04P-163-0277870-00

PATIENT
  Sex: Female
  Weight: 59.928 kg

DRUGS (1)
  1. HUMIRA [Suspect]
     Indication: RHEUMATOID ARTHRITIS
     Route: 058
     Dates: start: 20031101, end: 20041001

REACTIONS (1)
  - METASTATIC NEOPLASM [None]
